FAERS Safety Report 7034285-2 (Version None)
Quarter: 2010Q4

REPORT INFORMATION
  Report Type: 
  Country: None (occurrence: None)
  Receive Date: 20101008
  Receipt Date: 20100929
  Transmission Date: 20110411
  Serious: Yes (Congenital Anomaly)
  Sender: FDA-Public Use
  Company Number: JP-ASTRAZENECA-2010SE45388

PATIENT
  Age: 2 Year

DRUGS (2)
  1. PULMICORT [Suspect]
     Route: 064
     Dates: start: 20080701
  2. SULTANOL [Suspect]
     Dosage: DOSE UNKNOWN
     Route: 064

REACTIONS (1)
  - TOOTH DISORDER [None]
